FAERS Safety Report 9781242 (Version 1)
Quarter: 2013Q4

REPORT INFORMATION
  Report Type: Spontaneous
  Country: US (occurrence: None)
  Receive Date: 20131223
  Receipt Date: 20131223
  Transmission Date: 20140711
  Serious: No
  Sender: FDA-Public Use
  Company Number: None

PATIENT
  Age: 35 Year
  Sex: Female
  Weight: 104.33 kg

DRUGS (1)
  1. REMICADE [Suspect]
     Route: 042
     Dates: start: 20131126

REACTIONS (2)
  - Respiratory distress [None]
  - Unresponsive to stimuli [None]
